FAERS Safety Report 9261020 (Version 1)
Quarter: 2013Q2

REPORT INFORMATION
  Report Type: Spontaneous
  Country: US (occurrence: US)
  Receive Date: 20130429
  Receipt Date: 20130429
  Transmission Date: 20140414
  Serious: No
  Sender: FDA-Public Use
  Company Number: US-AMGEN-USASP2012049784

PATIENT
  Age: 31 Year
  Sex: Male
  Weight: 84 kg

DRUGS (5)
  1. SENSIPAR [Suspect]
     Indication: HYPERPARATHYROIDISM SECONDARY
     Dosage: 30 MG, QD
     Route: 048
     Dates: start: 20120723, end: 20120808
  2. COREG [Concomitant]
     Indication: HYPERTENSION
     Dosage: 25 MG, BID
     Route: 048
     Dates: start: 20120723
  3. MINOXIDIL [Concomitant]
     Indication: HYPERTENSION
     Dosage: 5 MG, BID
     Route: 048
     Dates: start: 20120723
  4. NIFEDIPINE ER [Concomitant]
     Indication: HYPERTENSION
     Dosage: 60 MG, BID
     Route: 048
     Dates: start: 20120711
  5. REQUIP [Concomitant]
     Indication: RESTLESS LEGS SYNDROME
     Dosage: 0.25 MG, PRN
     Route: 048
     Dates: start: 20120721

REACTIONS (1)
  - Anxiety [Recovered/Resolved]
